FAERS Safety Report 5280531-5 (Version None)
Quarter: 2007Q1

REPORT INFORMATION
  Report Type: 
  Country: None (occurrence: None)
  Receive Date: 20070329
  Receipt Date: 20070327
  Transmission Date: 20070707
  Serious: Yes (Hospitalization)
  Sender: FDA-Public Use
  Company Number: CH-AVENTIS-200712604GDDC

PATIENT
  Age: 76 Year
  Sex: Male

DRUGS (3)
  1. LANTUS [Suspect]
     Dosage: DOSE: UNK
     Route: 058
  2. APIDRA [Suspect]
     Dosage: DOSE: UNK
     Route: 058
     Dates: end: 20060723
  3. CARDIOVASCULAR SYSTEM DRUGS [Concomitant]
     Dosage: DOSE: UNK

REACTIONS (3)
  - HYPOGLYCAEMIA [None]
  - HYPOGLYCAEMIC SEIZURE [None]
  - MYOCARDIAL INFARCTION [None]
